FAERS Safety Report 5273512-9 (Version None)
Quarter: 2007Q1

REPORT INFORMATION
  Report Type: 
  Country: None (occurrence: None)
  Receive Date: 20070323
  Receipt Date: 20070313
  Transmission Date: 20070707
  Serious: Yes (Other)
  Sender: FDA-Public Use
  Company Number: FR-NOVOPROD-261802

PATIENT
  Age: 65 Year
  Sex: Male
  Weight: 69 kg

DRUGS (4)
  1. NORDITROPIN SIMPLEXX [Suspect]
     Indication: GROWTH HORMONE DEFICIENCY
     Dosage: .2 MG, SINGLE
     Route: 058
     Dates: start: 20050630, end: 20060801
  2. HYDROCORTISONE [Concomitant]
     Indication: BLOOD CORTICOTROPHIN ABNORMAL
     Dosage: 20 MG, UNK
     Route: 048
     Dates: start: 20050708
  3. ANDROTARDYL [Concomitant]
     Indication: BLOOD FOLLICLE STIMULATING HORMONE ABNORMAL
     Route: 058
     Dates: start: 20030826
  4. LEVOTHYROXINE SODIUM [Concomitant]
     Dosage: 175 UG, UNK
     Dates: start: 20030327

REACTIONS (1)
  - RENAL CELL CARCINOMA STAGE UNSPECIFIED [None]
